FAERS Safety Report 6688285-2 (Version None)
Quarter: 2010Q2

REPORT INFORMATION
  Report Type: 
  Country: None (occurrence: None)
  Receive Date: 20100409
  Receipt Date: 20100331
  Transmission Date: 20101027
  Serious: Yes (Other)
  Sender: FDA-Public Use
  Company Number: 2010SP010563

PATIENT
  Age: 71 Year
  Sex: Female

DRUGS (8)
  1. MIRTAZAPINE [Suspect]
     Indication: DEPRESSION
     Dosage: 15 MG;QD; PO
     Route: 048
     Dates: start: 20091113, end: 20091222
  2. VALPROATE SODIUM [Suspect]
     Dosage: ;PO; 100 MG;QD;PO; 50 MG;QD; PO; 40 MG;QD; PO; 25 MG;QD;PO
     Route: 048
     Dates: end: 20091112
  3. VALPROATE SODIUM [Suspect]
     Dosage: ;PO; 100 MG;QD;PO; 50 MG;QD; PO; 40 MG;QD; PO; 25 MG;QD;PO
     Route: 048
     Dates: start: 20091113, end: 20091119
  4. VALPROATE SODIUM [Suspect]
     Dosage: ;PO; 100 MG;QD;PO; 50 MG;QD; PO; 40 MG;QD; PO; 25 MG;QD;PO
     Route: 048
     Dates: start: 20091120, end: 20091126
  5. VALPROATE SODIUM [Suspect]
     Dosage: ;PO; 100 MG;QD;PO; 50 MG;QD; PO; 40 MG;QD; PO; 25 MG;QD;PO
     Route: 048
     Dates: start: 20091127, end: 20091213
  6. VALPROATE SODIUM [Suspect]
     Dosage: ;PO; 100 MG;QD;PO; 50 MG;QD; PO; 40 MG;QD; PO; 25 MG;QD;PO
     Route: 048
     Dates: start: 20091204, end: 20091217
  7. ZOLPIDEM TARTRATE [Concomitant]
  8. LORAZEPAM [Concomitant]

REACTIONS (3)
  - DRUG INTERACTION [None]
  - DYSURIA [None]
  - URINARY RETENTION [None]
